FAERS Safety Report 8522525-X (Version None)
Quarter: 2012Q3

REPORT INFORMATION
  Report Type: 
  Country: None (occurrence: None)
  Receive Date: 20120719
  Receipt Date: 20120710
  Transmission Date: 20120928
  Serious: Yes (Other)
  Sender: FDA-Public Use
  Company Number: US-ABBOTT-12P-163-0954469-00

PATIENT
  Sex: Female
  Weight: 53.572 kg

DRUGS (13)
  1. NIASPAN [Suspect]
     Indication: ANGIOPLASTY
     Dosage: AT BEDTIME
     Dates: start: 19990101
  2. MULTI-VITAMINS [Concomitant]
     Indication: PRODUCT USED FOR UNKNOWN INDICATION
  3. KEPPRA [Concomitant]
     Indication: PRODUCT USED FOR UNKNOWN INDICATION
  4. ACIPHEX [Concomitant]
     Indication: PRODUCT USED FOR UNKNOWN INDICATION
  5. NIASPAN [Suspect]
     Indication: CORONARY ARTERIAL STENT INSERTION
  6. NIASPAN [Suspect]
     Indication: FAMILIAL RISK FACTOR
  7. CALCIUM [Concomitant]
     Indication: PRODUCT USED FOR UNKNOWN INDICATION
  8. MAGNESIUM SULFATE [Concomitant]
     Indication: PRODUCT USED FOR UNKNOWN INDICATION
  9. FIBER [Concomitant]
     Indication: PRODUCT USED FOR UNKNOWN INDICATION
  10. LIPITOR [Concomitant]
     Indication: PRODUCT USED FOR UNKNOWN INDICATION
  11. NIASPAN [Suspect]
     Indication: CATHETERISATION CARDIAC
  12. METFORMIN HYDROCHLORIDE [Concomitant]
     Indication: PRODUCT USED FOR UNKNOWN INDICATION
  13. CARVEDILOL [Concomitant]
     Indication: PRODUCT USED FOR UNKNOWN INDICATION
     Dosage: HALF TABLET

REACTIONS (2)
  - SMALL INTESTINAL OBSTRUCTION [None]
  - SUBARACHNOID HAEMORRHAGE [None]
